FAERS Safety Report 9315176 (Version 2)
Quarter: 2013Q4

REPORT INFORMATION
  Report Type: Report from Study
  Country: DE (occurrence: DE)
  Receive Date: 20130529
  Receipt Date: 20131212
  Transmission Date: 20140711
  Serious: Yes (Hospitalization)
  Sender: FDA-Public Use
  Company Number: DE-AMGEN-DEUCT2013037932

PATIENT
  Age: 50 Year
  Sex: Male

DRUGS (4)
  1. ETANERCEPT [Suspect]
     Indication: PRODUCT USED FOR UNKNOWN INDICATION
     Dosage: 50 MG, WEEKLY
     Route: 065
     Dates: end: 20130321
  2. ETANERCEPT [Suspect]
     Dosage: 50 MG, WEEKLY
     Route: 065
     Dates: start: 20130402
  3. LEFLUNOMIDE [Concomitant]
     Dosage: 20 MG, DAILY
     Dates: start: 201303
  4. AMLODIPINE [Concomitant]
     Dosage: UNK

REACTIONS (1)
  - Pneumonia [Recovered/Resolved]
